FAERS Safety Report 20908045 (Version 1)
Quarter: 2022Q2

REPORT INFORMATION
  Report Type: Spontaneous
  Country: US (occurrence: US)
  Receive Date: 20220602
  Receipt Date: 20220602
  Transmission Date: 20220721
  Serious: Yes (Other)
  Sender: FDA-Public Use
  Company Number: US-BoehringerIngelheim-2022-BI-173559

PATIENT
  Sex: Female

DRUGS (2)
  1. OFEV [Suspect]
     Active Substance: NINTEDANIB
     Indication: Product used for unknown indication
     Dates: start: 201911, end: 202108
  2. OFEV [Suspect]
     Active Substance: NINTEDANIB
     Dates: start: 2022

REACTIONS (10)
  - Scleroderma [Unknown]
  - Hypoxia [Unknown]
  - Bronchitis [Unknown]
  - Diarrhoea [Recovering/Resolving]
  - Sinus congestion [Unknown]
  - Upper-airway cough syndrome [Unknown]
  - Productive cough [Unknown]
  - Dyspnoea [Unknown]
  - Oedema peripheral [Unknown]
  - Chronic respiratory failure [Unknown]
